FAERS Safety Report 8761703 (Version 1)
Quarter: 2012Q4

REPORT INFORMATION
  Report Type: Spontaneous
  Country: US (occurrence: None)
  Receive Date: 20120830
  Receipt Date: 20120830
  Transmission Date: 20130627
  Serious: Yes (Other)
  Sender: FDA-Public Use
  Company Number: None

PATIENT
  Age: 59 Year
  Sex: Female
  Weight: 70.31 kg

DRUGS (1)
  1. PICATO [Suspect]
     Dosage: dime-size application to area
     Route: 061
     Dates: start: 20120828, end: 20120828

REACTIONS (4)
  - Blister [None]
  - Wound secretion [None]
  - Pain [None]
  - Sleep disorder [None]
